FAERS Safety Report 13514739 (Version 1)
Quarter: 2017Q2

REPORT INFORMATION
  Report Type: Spontaneous
  Country: DE (occurrence: DE)
  Receive Date: 20170504
  Receipt Date: 20170504
  Transmission Date: 20170830
  Serious: Yes (Other)
  Sender: FDA-Public Use
  Company Number: DE-TEVA-765433GER

PATIENT
  Sex: Male

DRUGS (3)
  1. TOXAPREVENT (MEDICAL DEVICE) [Interacting]
     Active Substance: DEVICE
  2. BISOPROLOL-RATIOPHARM 1,25 MG TABLETTEN [Suspect]
     Active Substance: BISOPROLOL
     Route: 048
  3. PIPAMPERON [Interacting]
     Active Substance: PIPAMPERONE HYDROCHLORIDE
     Dosage: 20 MILLIGRAM DAILY;

REACTIONS (2)
  - Drug interaction [Unknown]
  - Arrhythmia [Unknown]
